FAERS Safety Report 5958844-0 (Version None)
Quarter: 2008Q4

REPORT INFORMATION
  Report Type: 
  Country: None (occurrence: None)
  Receive Date: 20081117
  Receipt Date: 20081105
  Transmission Date: 20090506
  Serious: Yes (Other)
  Sender: FDA-Public Use
  Company Number: GXKR2008GB10575

PATIENT
  Age: 72 Year
  Sex: Female

DRUGS (7)
  1. ALLOPURINOL [Suspect]
     Indication: GOUT
     Dosage: ORAL
     Route: 048
     Dates: start: 20081006, end: 20081023
  2. SIMVASTATIN [Suspect]
     Indication: BLOOD CHOLESTEROL INCREASED
     Dosage: 80 MG, ORAL
     Route: 048
     Dates: start: 20060101, end: 20081023
  3. BISOPROLOL FUMARATE [Concomitant]
  4. ENALAPRIL MALEATE [Concomitant]
  5. EZETIMIBE [Concomitant]
  6. INSULIN (INSULIN) [Concomitant]
  7. ISOSORBIDE MONONITRATE [Concomitant]

REACTIONS (2)
  - DRUG INTERACTION [None]
  - RHABDOMYOLYSIS [None]
